FAERS Safety Report 5368187-4 (Version None)
Quarter: 2007Q2

REPORT INFORMATION
  Report Type: 
  Country: None (occurrence: None)
  Receive Date: 20070625
  Receipt Date: 20070613
  Transmission Date: 20071010
  Serious: Yes (Other)
  Sender: FDA-Public Use
  Company Number: PHBS2007JP10122

PATIENT
  Age: 46 Year
  Sex: Male

DRUGS (5)
  1. CYCLOSPORINE [Suspect]
     Indication: CORD BLOOD TRANSPLANT THERAPY
     Route: 065
  2. METHOTREXATE [Suspect]
     Indication: CORD BLOOD TRANSPLANT THERAPY
     Route: 065
  3. ENDOXAN [Suspect]
     Indication: CORD BLOOD TRANSPLANT THERAPY
     Route: 065
  4. CYLOCIDE [Suspect]
     Indication: CORD BLOOD TRANSPLANT THERAPY
     Route: 065
  5. FILGRASTIM [Suspect]
     Route: 065

REACTIONS (7)
  - ACUTE GRAFT VERSUS HOST DISEASE IN SKIN [None]
  - CRYPTOGENIC ORGANISING PNEUMONIA [None]
  - DYSPNOEA [None]
  - PCO2 DECREASED [None]
  - PO2 DECREASED [None]
  - PYREXIA [None]
  - VIRAL DNA TEST POSITIVE [None]
